FAERS Safety Report 7104707-7 (Version None)
Quarter: 2010Q4

REPORT INFORMATION
  Report Type: 
  Country: None (occurrence: None)
  Receive Date: 20101116
  Receipt Date: 20100115
  Transmission Date: 20110411
  Serious: Yes (Other)
  Sender: FDA-Public Use
  Company Number: US-ASTRAZENECA-2009SE19357

PATIENT
  Age: 23309 Day
  Sex: Female
  Weight: 119.3 kg

DRUGS (24)
  1. SEROQUEL [Suspect]
     Indication: SCHIZOPHRENIA
     Dosage: VARIOUS DOSAGES
     Route: 048
     Dates: start: 19990101
  2. SEROQUEL [Suspect]
     Route: 048
     Dates: start: 20030805
  3. SEROQUEL [Suspect]
     Route: 048
     Dates: start: 20050826
  4. HALDOL [Concomitant]
     Dates: start: 19740101, end: 19780101
  5. NAVANE [Concomitant]
     Dates: start: 19780101, end: 19800101
  6. STELAZINE [Concomitant]
     Dates: start: 19680101, end: 19740101
  7. THORAZINE [Concomitant]
     Dates: start: 19650101, end: 19680101
  8. CITALOPRAM [Concomitant]
     Dates: start: 20000101
  9. LOXAPINE [Concomitant]
     Dates: start: 20000101
  10. LOXAPINE [Concomitant]
     Dates: start: 20030805
  11. CELEXA [Concomitant]
     Dates: start: 20030805
  12. CELEXA [Concomitant]
     Dates: start: 20050826
  13. VISTARIL [Concomitant]
     Dates: start: 20030805
  14. VISTARIL [Concomitant]
     Dosage: PRN
     Dates: start: 20050826
  15. SYNTHROID [Concomitant]
     Dates: start: 20030805
  16. SYNTHROID [Concomitant]
     Dates: start: 20050826
  17. VIOXX [Concomitant]
     Dates: start: 20030805
  18. ASPIRIN [Concomitant]
     Dates: start: 20030805
  19. ASPIRIN [Concomitant]
     Dosage: BABY ASPIRIN DAILY
     Dates: start: 20050826
  20. ADVAIR DISKUS 100/50 [Concomitant]
     Dates: start: 20030805
  21. ADVAIR DISKUS 100/50 [Concomitant]
     Dosage: 250/ 50
     Dates: start: 20050826
  22. FLEXERIL [Concomitant]
     Dosage: 1 PO AQM
     Dates: start: 20030805
  23. DARVOCET [Concomitant]
     Dates: start: 20050826
  24. ZOCOR [Concomitant]
     Dates: start: 20050826

REACTIONS (3)
  - DIABETIC NEUROPATHY [None]
  - HYPERGLYCAEMIA [None]
  - TYPE 2 DIABETES MELLITUS [None]
